FAERS Safety Report 6272451-4 (Version None)
Quarter: 2009Q3

REPORT INFORMATION
  Report Type: 
  Country: None (occurrence: None)
  Receive Date: 20090713
  Receipt Date: 20090401
  Transmission Date: 20100115
  Serious: Yes (Hospitalization)
  Sender: FDA-Public Use
  Company Number: 626972

PATIENT
  Age: 62 Year
  Sex: Female
  Weight: 72.6 kg

DRUGS (2)
  1. BONIVA [Suspect]
     Indication: OSTEOPENIA
     Dosage: 150 MG  1 PER 1 MONTH  ORAL
     Route: 048
     Dates: start: 20090301, end: 20090416
  2. LISINOPRIL [Concomitant]

REACTIONS (7)
  - ASTHENIA [None]
  - CHEST PAIN [None]
  - CONSTIPATION [None]
  - ERUCTATION [None]
  - NAUSEA [None]
  - NECK PAIN [None]
  - SINUS HEADACHE [None]
